FAERS Safety Report 7068828-X (Version None)
Quarter: 2010Q4

REPORT INFORMATION
  Report Type: 
  Country: None (occurrence: None)
  Receive Date: 20101028
  Receipt Date: 20101019
  Transmission Date: 20110411
  Serious: Yes (Hospitalization)
  Sender: FDA-Public Use
  Company Number: GXBR2010US01740

PATIENT
  Sex: Male
  Weight: 80.726 kg

DRUGS (15)
  1. AMIODARONE HYDROCHLORIDE TABLETS (NGX) [Suspect]
     Indication: HEART RATE IRREGULAR
     Dosage: 200 MG, BID2SDO
     Route: 048
     Dates: end: 20101012
  2. ARMOUR THYROID [Concomitant]
     Indication: THYROID DISORDER
     Dosage: 90 UNK, UNK
  3. CARVEDILOL [Concomitant]
     Dosage: 6.25 MG, BID
     Route: 048
  4. CYMBALTA [Concomitant]
     Indication: DEPRESSION
     Dosage: 60 MG, QD
     Route: 048
  5. DIGOXIN [Concomitant]
     Dosage: UNK MG, QD
  6. FERROUS SULFATE [Concomitant]
     Indication: MINERAL SUPPLEMENTATION
     Dosage: 325 MG, QD
     Route: 048
  7. FLUDROCORTISONE [Concomitant]
     Dosage: UNK
  8. FUROSEMIDE [Concomitant]
     Indication: FLUID RETENTION
     Dosage: 20 MG, BID
  9. LISINOPRIL [Concomitant]
     Dosage: 2.5 MG, QD
  10. PANTOPRAZOLE [Concomitant]
     Indication: ULCER
     Dosage: UNK MG, QD
  11. RANITIDINE [Concomitant]
     Indication: ULCER
     Dosage: 300 MG, BID
  12. ASPIRIN [Concomitant]
     Dosage: 81 MG, QD
  13. SPIRONOLACTONE [Concomitant]
     Dosage: 25 MG, QD
  14. SPIRIVA [Concomitant]
     Indication: CHRONIC OBSTRUCTIVE PULMONARY DISEASE
     Dosage: UNK
  15. CALCIUM [Concomitant]
     Indication: MINERAL SUPPLEMENTATION
     Dosage: UNK

REACTIONS (25)
  - ACTIVITIES OF DAILY LIVING IMPAIRED [None]
  - BACK PAIN [None]
  - BALANCE DISORDER [None]
  - BODY HEIGHT DECREASED [None]
  - CHRONIC OBSTRUCTIVE PULMONARY DISEASE [None]
  - COORDINATION ABNORMAL [None]
  - DIPLOPIA [None]
  - EYE HAEMORRHAGE [None]
  - FALL [None]
  - FATIGUE [None]
  - HEPATIC CIRRHOSIS [None]
  - MENTAL IMPAIRMENT [None]
  - MUSCULAR WEAKNESS [None]
  - MYASTHENIA GRAVIS [None]
  - NAUSEA [None]
  - NEUROPATHY PERIPHERAL [None]
  - OEDEMA [None]
  - PNEUMONIA [None]
  - RENAL IMPAIRMENT [None]
  - RESTLESSNESS [None]
  - ULCER [None]
  - VISION BLURRED [None]
  - VOMITING [None]
  - WEIGHT DECREASED [None]
  - WHEEZING [None]
